FAERS Safety Report 9551699 (Version 1)
Quarter: 2013Q3

REPORT INFORMATION
  Report Type: Spontaneous
  Country: US (occurrence: None)
  Receive Date: 20130724
  Receipt Date: 20130724
  Transmission Date: 20140515
  Serious: Yes (Hospitalization, Other)
  Sender: FDA-Public Use
  Company Number: PHEH2013US004058

PATIENT
  Age: 62 Year
  Sex: Female
  Weight: 61 kg

DRUGS (8)
  1. GLEEVEC (IMATINIB) UNKNOWN [Suspect]
     Indication: SOFT TISSUE NEOPLASM
     Route: 048
     Dates: start: 20120925
  2. GLEEVEC (IMATINIB) UNKNOWN [Suspect]
     Indication: GASTROINTESTINAL STROMAL TUMOUR
     Route: 048
     Dates: start: 20120925
  3. CARAFATE (SUCRALFATE) TABLET, 1G [Concomitant]
  4. HYDROCODONE/ACETAMINOPHEN/01554201/(HYDROCODONE, PARACETAMOL) [Concomitant]
  5. LEXAPRO (ESCITALOPRAM OXALATE) [Concomitant]
  6. PRILOSEC [Concomitant]
  7. TRAZODONE (TRAZODONE) [Concomitant]
  8. ZOFRAN (ONDANSETRON HYDROCHLORIDE) [Concomitant]

REACTIONS (2)
  - Urinary tract infection [None]
  - Full blood count decreased [None]
